FAERS Safety Report 20419117 (Version 2)
Quarter: 2022Q1

REPORT INFORMATION
  Report Type: Spontaneous
  Country: BR (occurrence: BR)
  Receive Date: 20220203
  Receipt Date: 20220211
  Transmission Date: 20220423
  Serious: Yes (Hospitalization, Other)
  Sender: FDA-Public Use
  Company Number: BR-CELLTRION INC.-2022BR000857

PATIENT

DRUGS (8)
  1. TRUXIMA [Suspect]
     Active Substance: RITUXIMAB-ABBS
     Indication: Non-Hodgkin^s lymphoma
     Dosage: 750 MG EVERY 21 DAYS IN 3 CYCLES
     Dates: start: 20210127
  2. TRUXIMA [Suspect]
     Active Substance: RITUXIMAB-ABBS
     Indication: Diffuse large B-cell lymphoma
     Dosage: 750 MG EVERY 21 DAYS IN 3 CYCLES (CYCLE 2 D1)
     Route: 042
     Dates: start: 20211215
  3. GRANISETRONE [Concomitant]
  4. ACETAMINOPHEN [Concomitant]
     Active Substance: ACETAMINOPHEN
  5. DIPHENHYDRAMINE [Concomitant]
     Active Substance: DIPHENHYDRAMINE
  6. SODIUM CHLORIDE [Concomitant]
     Active Substance: SODIUM CHLORIDE
     Dosage: UNK
  7. CYCLOPHOSPHAMIDE\DOXORUBICIN\PREDNISONE\VINCRISTINE [Concomitant]
     Active Substance: CYCLOPHOSPHAMIDE\DOXORUBICIN\PREDNISONE\VINCRISTINE
     Dosage: 5X
     Dates: start: 20210209
  8. CARBOPLATIN\ETOPOSIDE\IFOSFAMIDE [Concomitant]
     Active Substance: CARBOPLATIN\ETOPOSIDE\IFOSFAMIDE
     Dosage: RECURRENCE 2X

REACTIONS (4)
  - Tachypnoea [Recovered/Resolved]
  - Hypoxia [Recovered/Resolved]
  - Tachycardia [Recovered/Resolved]
  - Underdose [Unknown]

NARRATIVE: CASE EVENT DATE: 20220105
